FAERS Safety Report 5113487-6 (Version None)
Quarter: 2006Q3

REPORT INFORMATION
  Report Type: 
  Country: None (occurrence: None)
  Receive Date: 20060921
  Receipt Date: 20060921
  Transmission Date: 20061208
  Serious: Yes (Hospitalization)
  Sender: FDA-Public Use
  Company Number: None

PATIENT
  Age: 66 Year
  Sex: Female
  Weight: 73.4827 kg

DRUGS (6)
  1. TARCEVA [Suspect]
     Indication: BREAST CANCER METASTATIC
     Dosage: 100 MG
     Dates: start: 20060905, end: 20060912
  2. RAD001 (EVEROLIMUS) [Suspect]
     Indication: BREAST CANCER METASTATIC
     Dosage: 5 MG
     Dates: start: 20060905, end: 20060912
  3. OXYCODONE HCL [Concomitant]
  4. OXYCOD/APAP [Concomitant]
  5. TUMS [Concomitant]
  6. SENOKOT [Concomitant]

REACTIONS (13)
  - BODY TEMPERATURE INCREASED [None]
  - DEEP VEIN THROMBOSIS [None]
  - DIVERTICULUM [None]
  - FATIGUE [None]
  - HAEMATOCRIT DECREASED [None]
  - HAEMOGLOBIN DECREASED [None]
  - HEART RATE INCREASED [None]
  - MALAISE [None]
  - PLATELET COUNT DECREASED [None]
  - PLEURAL EFFUSION [None]
  - PULMONARY EMBOLISM [None]
  - RED BLOOD CELL COUNT DECREASED [None]
  - WHITE BLOOD CELL COUNT DECREASED [None]
